FAERS Safety Report 14663786 (Version 6)
Quarter: 2018Q2

REPORT INFORMATION
  Report Type: Report from Study
  Country: None (occurrence: CA)
  Receive Date: 20180321
  Receipt Date: 20180424
  Transmission Date: 20180711
  Serious: Yes (Hospitalization)
  Sender: FDA-Public Use
  Company Number: CA-ABBVIE-18K-028-2292524-00

PATIENT
  Age: 73 Year
  Sex: Male
  Weight: 95.34 kg

DRUGS (7)
  1. EFFEXOR [Concomitant]
     Active Substance: VENLAFAXINE HYDROCHLORIDE
     Indication: PRODUCT USED FOR UNKNOWN INDICATION
  2. COMTAN [Concomitant]
     Active Substance: ENTACAPONE
     Indication: PRODUCT USED FOR UNKNOWN INDICATION
  3. SINEMET [Concomitant]
     Active Substance: CARBIDOPA\LEVODOPA
     Indication: PRODUCT USED FOR UNKNOWN INDICATION
  4. OXYCONTIN [Concomitant]
     Active Substance: OXYCODONE HYDROCHLORIDE
     Indication: PRODUCT USED FOR UNKNOWN INDICATION
  5. DUODOPA [Suspect]
     Active Substance: CARBIDOPA\LEVODOPA
     Indication: PARKINSON^S DISEASE
     Dosage: DOSING MORNING BOLUS: 9.1 ML?CONTINUOUS DOSE RATE: 4.6 ML/H?EXTRA DOSE: 2 ML
     Route: 050
     Dates: start: 20171106, end: 20180405
  6. GABAPENTIN. [Concomitant]
     Active Substance: GABAPENTIN
     Indication: PRODUCT USED FOR UNKNOWN INDICATION
  7. MIRAPEX [Concomitant]
     Active Substance: PRAMIPEXOLE DIHYDROCHLORIDE
     Indication: PRODUCT USED FOR UNKNOWN INDICATION

REACTIONS (10)
  - Clostridium difficile infection [Not Recovered/Not Resolved]
  - Hallucination [Not Recovered/Not Resolved]
  - Intentional medical device removal by patient [Recovered/Resolved]
  - Hip fracture [Not Recovered/Not Resolved]
  - Intentional medical device removal by patient [Not Recovered/Not Resolved]
  - Aggression [Not Recovered/Not Resolved]
  - Cystitis [Recovered/Resolved]
  - Cystitis [Not Recovered/Not Resolved]
  - Fall [Unknown]
  - Delirium [Not Recovered/Not Resolved]

NARRATIVE: CASE EVENT DATE: 2018
